FAERS Safety Report 5882256-1 (Version None)
Quarter: 2008Q3

REPORT INFORMATION
  Report Type: 
  Country: None (occurrence: None)
  Receive Date: 20080912
  Receipt Date: 20080801
  Transmission Date: 20090109
  Serious: No
  Sender: FDA-Public Use
  Company Number: US-ABBOTT-08P-163-0467795-00

PATIENT
  Sex: Female
  Weight: 54.48 kg

DRUGS (8)
  1. HUMIRA [Suspect]
     Indication: CROHN'S DISEASE
     Route: 058
     Dates: start: 20071101, end: 20071201
  2. LOMOTIL [Concomitant]
     Indication: ANTIDIARRHOEAL SUPPORTIVE CARE
  3. ESCITALOPRAM OXALATE [Concomitant]
     Indication: ANTIDEPRESSANT THERAPY
  4. ESZOPICLONE [Concomitant]
     Indication: INSOMNIA
  5. ACETAMINOPHEN W/ CODEINE [Concomitant]
     Indication: CROHN'S DISEASE
  6. ACETAMINOPHEN W/ CODEINE [Concomitant]
     Indication: PAIN
  7. POTASSIUM CHLORIDE [Concomitant]
     Indication: MINERAL SUPPLEMENTATION
  8. CALCIUM [Concomitant]
     Indication: MINERAL SUPPLEMENTATION

REACTIONS (3)
  - COUGH [None]
  - DRUG INEFFECTIVE [None]
  - OROPHARYNGEAL PAIN [None]
